FAERS Safety Report 12492683 (Version 1)
Quarter: 2016Q2

REPORT INFORMATION
  Report Type: Spontaneous
  Country: PT (occurrence: PT)
  Receive Date: 20160623
  Receipt Date: 20160623
  Transmission Date: 20160815
  Serious: Yes (Hospitalization, Other)
  Sender: FDA-Public Use
  Company Number: PT-PFIZER INC-2016301001

PATIENT
  Age: 48 Year
  Sex: Male

DRUGS (9)
  1. SUNITINIB MALATE. [Interacting]
     Active Substance: SUNITINIB MALATE
     Dosage: 75 MG, DAILY (SCHEME 2/1)
  2. SUNITINIB MALATE. [Interacting]
     Active Substance: SUNITINIB MALATE
     Dosage: 37.5 MG, DAILY (SCHEME 4/2)
  3. SUNITINIB MALATE. [Interacting]
     Active Substance: SUNITINIB MALATE
     Dosage: 75 MG, DAILY (SCHEME 4/2)
  4. SUNITINIB MALATE. [Interacting]
     Active Substance: SUNITINIB MALATE
     Dosage: 50 MG, DAILY (SCHEME 2/1)
  5. RIFAMPICIN [Interacting]
     Active Substance: RIFAMPIN
     Indication: TUBERCULOSIS OF GENITOURINARY SYSTEM
     Dosage: UNK
  6. SUNITINIB MALATE. [Interacting]
     Active Substance: SUNITINIB MALATE
     Dosage: 50 MG, DAILY (SCHEME 4/2)
     Dates: end: 201605
  7. SUNITINIB MALATE. [Interacting]
     Active Substance: SUNITINIB MALATE
     Dosage: 50 MG, DAILY (SCHEME 2/1)
  8. SUNITINIB MALATE. [Suspect]
     Active Substance: SUNITINIB MALATE
     Indication: METASTATIC RENAL CELL CARCINOMA
     Dosage: 50 MG, DAILY (SCHEME 4/2)
  9. SUNITINIB MALATE. [Interacting]
     Active Substance: SUNITINIB MALATE
     Dosage: 62.5 MG, DAILY (SCHEME 4/2)

REACTIONS (5)
  - Tuberculosis of genitourinary system [Unknown]
  - Rash [Unknown]
  - Stomatitis [Unknown]
  - Diverticulitis [Unknown]
  - Drug interaction [Unknown]

NARRATIVE: CASE EVENT DATE: 201511
